FAERS Safety Report 4290084-6 (Version None)
Quarter: 2004Q1

REPORT INFORMATION
  Report Type: 
  Country: None (occurrence: None)
  Receive Date: 20040210
  Receipt Date: 20031215
  Transmission Date: 20041129
  Serious: Yes (Hospitalization)
  Sender: FDA-Public Use
  Company Number: JP-BRISTOL-MYERS SQUIBB COMPANY-12462669

PATIENT
  Age: 87 Year
  Sex: Male

DRUGS (14)
  1. GATIFLO [Suspect]
     Indication: JOINT INJURY
     Route: 048
     Dates: start: 20031118, end: 20031120
  2. GATIFLO [Suspect]
     Indication: INFECTION
     Route: 048
     Dates: start: 20031118, end: 20031120
  3. GLYBURIDE [Concomitant]
     Route: 048
     Dates: end: 20031120
  4. ASPIRIN [Concomitant]
     Route: 048
     Dates: start: 20030728, end: 20031116
  5. URINORM [Concomitant]
     Route: 048
     Dates: start: 20030428, end: 20031216
  6. ALDACTONE [Concomitant]
     Route: 048
     Dates: start: 20030428, end: 20031216
  7. LASIX [Concomitant]
     Route: 048
     Dates: start: 20030428, end: 20031216
  8. BLOPRESS [Concomitant]
     Route: 048
     Dates: start: 20030428, end: 20031216
  9. BASEN [Concomitant]
     Route: 048
     Dates: start: 20030602
  10. EPADEL [Concomitant]
     Route: 048
     Dates: start: 20030818
  11. PRORENAL [Concomitant]
     Route: 048
     Dates: start: 20030728, end: 20031216
  12. TSUMURA CHOREI-TO [Concomitant]
     Route: 048
     Dates: start: 20031118, end: 20031120
  13. CLARITIN [Concomitant]
     Route: 048
     Dates: start: 20031118, end: 20031120
  14. EBASTEL [Concomitant]
     Route: 048
     Dates: start: 20031118, end: 20031120

REACTIONS (1)
  - HYPOGLYCAEMIA [None]
